FAERS Safety Report 12241791 (Version 1)
Quarter: 2016Q2

REPORT INFORMATION
  Report Type: Spontaneous
  Country: None (occurrence: None)
  Receive Date: 20160405
  Receipt Date: 20160405
  Transmission Date: 20160815
  Serious: Yes (Hospitalization)
  Sender: FDA-Public Use
  Company Number: None

PATIENT
  Age: 26 Year
  Sex: Female
  Weight: 86.18 kg

DRUGS (5)
  1. OMEPRAZOLE. [Concomitant]
     Active Substance: OMEPRAZOLE
  2. TYLENOL [Concomitant]
     Active Substance: ACETAMINOPHEN
  3. BACTRIM [Concomitant]
     Active Substance: SULFAMETHOXAZOLE\TRIMETHOPRIM
  4. NEXPLANON [Suspect]
     Active Substance: ETONOGESTREL
     Dates: start: 20140508, end: 20160404
  5. LORATADIN [Concomitant]
     Active Substance: LORATADINE

REACTIONS (5)
  - Vertigo [None]
  - Dizziness [None]
  - Loss of consciousness [None]
  - Balance disorder [None]
  - Nausea [None]

NARRATIVE: CASE EVENT DATE: 20160404
